FAERS Safety Report 7238640-7 (Version None)
Quarter: 2011Q1

REPORT INFORMATION
  Report Type: 
  Country: None (occurrence: None)
  Receive Date: 20110121
  Receipt Date: 20110113
  Transmission Date: 20110831
  Serious: No
  Sender: FDA-Public Use
  Company Number: US-B.I. PHARMACEUTICALS,INC./RIDGEFIELD-2011-BP-01210BP

PATIENT
  Age: 70 Year
  Sex: Female

DRUGS (1)
  1. PRADAXA [Suspect]
     Indication: ATRIAL FIBRILLATION
     Dosage: 150 MG
     Route: 048
     Dates: start: 20110105

REACTIONS (6)
  - DYSPEPSIA [None]
  - ERUCTATION [None]
  - BLOODY DISCHARGE [None]
  - CHEST DISCOMFORT [None]
  - FOREIGN BODY [None]
  - TOOTHACHE [None]
